FAERS Safety Report 24065533 (Version 4)
Quarter: 2025Q1

REPORT INFORMATION
  Report Type: Spontaneous
  Country: US (occurrence: US)
  Receive Date: 20240709
  Receipt Date: 20250103
  Transmission Date: 20250408
  Serious: Yes (Other)
  Sender: PFIZER
  Company Number: US-PFIZER INC-202400209110

PATIENT
  Age: 75 Year
  Sex: Female

DRUGS (1)
  1. XELJANZ XR [Suspect]
     Active Substance: TOFACITINIB CITRATE
     Dates: start: 202407

REACTIONS (10)
  - Neoplasm malignant [Not Recovered/Not Resolved]
  - Cardiac disorder [Unknown]
  - Hypersensitivity [Not Recovered/Not Resolved]
  - Gout [Unknown]
  - Pain [Unknown]
  - Swelling [Unknown]
  - Arthritis [Unknown]
  - Ear infection [Not Recovered/Not Resolved]
  - Urinary tract infection [Not Recovered/Not Resolved]
  - Product dose omission issue [Unknown]

NARRATIVE: CASE EVENT DATE: 20241101
